APPROVED DRUG PRODUCT: PREDNISONE
Active Ingredient: PREDNISONE
Strength: 1MG
Dosage Form/Route: TABLET;ORAL
Application: A210785 | Product #001 | TE Code: AB
Applicant: STRIDES PHARMA GLOBAL PTE LTD
Approved: Sep 2, 2020 | RLD: No | RS: No | Type: RX